FAERS Safety Report 14832700 (Version 1)
Quarter: 2018Q2

REPORT INFORMATION
  Report Type: Spontaneous
  Country: US (occurrence: US)
  Receive Date: 20180411
  Receipt Date: 20180411
  Transmission Date: 20180711
  Serious: Yes (Hospitalization)
  Sender: FDA-Public Use
  Company Number: None

PATIENT
  Age: 71 Year
  Sex: Male

DRUGS (9)
  1. COREG [Concomitant]
     Active Substance: CARVEDILOL
     Dates: start: 20161101
  2. HYDROCHLOROTHIAZIDE (IVAX) [Concomitant]
     Dates: start: 20170530
  3. VICODIN [Concomitant]
     Active Substance: ACETAMINOPHEN\HYDROCODONE BITARTRATE
     Dates: start: 20180323, end: 20180325
  4. ULTRAM [Concomitant]
     Active Substance: TRAMADOL HYDROCHLORIDE
     Dates: start: 20180302, end: 20180402
  5. AUGMENTIN SUSP (TEVA) [Concomitant]
     Dates: start: 20180323, end: 20180401
  6. VELTASSA [Suspect]
     Active Substance: PATIROMER
     Indication: HYPERKALAEMIA
     Route: 048
     Dates: start: 20180316, end: 20180329
  7. ZETIA [Concomitant]
     Active Substance: EZETIMIBE
     Dates: start: 20180111
  8. APRESOLINE HYDROCHLORIDE [Concomitant]
     Active Substance: HYDRALAZINE HYDROCHLORIDE
     Dates: start: 20161101
  9. AMOXICILLIN SUSPENSION (TEVA) [Concomitant]
     Dates: start: 20180406

REACTIONS (4)
  - Dehydration [None]
  - Diarrhoea [None]
  - Asthenia [None]
  - Therapy cessation [None]

NARRATIVE: CASE EVENT DATE: 20180410
